FAERS Safety Report 15698511 (Version 1)
Quarter: 2018Q4

REPORT INFORMATION
  Report Type: Report from Study
  Country: None (occurrence: CO)
  Receive Date: 20181207
  Receipt Date: 20181207
  Transmission Date: 20190205
  Serious: Yes (Hospitalization)
  Sender: FDA-Public Use
  Company Number: CO-ABBVIE-18S-036-2582075-00

PATIENT
  Age: 3 Month
  Sex: Female
  Weight: 3 kg

DRUGS (1)
  1. SYNAGIS [Suspect]
     Active Substance: PALIVIZUMAB
     Indication: BRONCHOPULMONARY DYSPLASIA
     Route: 030
     Dates: start: 20181011, end: 20181011

REACTIONS (2)
  - Hydrocephalus [Recovering/Resolving]
  - Surgery [Recovering/Resolving]

NARRATIVE: CASE EVENT DATE: 20181126
